FAERS Safety Report 25982780 (Version 3)
Quarter: 2025Q4

REPORT INFORMATION
  Report Type: Report from Study
  Country: EU (occurrence: EU)
  Receive Date: 20251031
  Receipt Date: 20251127
  Transmission Date: 20260118
  Serious: Yes (Hospitalization, Other)
  Sender: ABBVIE
  Company Number: EU-ABBVIE-6497903

PATIENT
  Sex: Female

DRUGS (3)
  1. FOSCARBIDOPA\FOSLEVODOPA [Suspect]
     Active Substance: FOSCARBIDOPA\FOSLEVODOPA
     Indication: Parkinson^s disease
     Dosage: CRN: 0.27ML/H; CR: 0.39ML/H; CRH: 0.41ML/H; ED: 0.15ML
     Route: 058
     Dates: start: 20241022
  2. FOSCARBIDOPA\FOSLEVODOPA [Suspect]
     Active Substance: FOSCARBIDOPA\FOSLEVODOPA
     Dosage: CRN: 0.27 ML/H, CR: 0.31 ML/H, CRH: 0.34 ML/H.
     Route: 058
     Dates: end: 202510
  3. FOSCARBIDOPA\FOSLEVODOPA [Suspect]
     Active Substance: FOSCARBIDOPA\FOSLEVODOPA
     Dosage: CONTINUOUS INFUSION RATE (ML/H): 0.39, CONTINUOUS INFUSION RATE (HIGH) (ML/H) : 0.41, CONTINUOUS ...
     Route: 058
     Dates: start: 202410

REACTIONS (18)
  - Intentional medical device removal by patient [Unknown]
  - Hallucination [Not Recovered/Not Resolved]
  - Device intolerance [Unknown]
  - Sleep disorder [Unknown]
  - Cognitive disorder [Unknown]
  - Hypokalaemia [Recovering/Resolving]
  - Generalised tonic-clonic seizure [Unknown]
  - Arrhythmia [Unknown]
  - Syncope [Unknown]
  - Cerebral microangiopathy [Unknown]
  - Mitral valve incompetence [Unknown]
  - Aortic valve incompetence [Unknown]
  - Hypertension [Unknown]
  - Hypothyroidism [Unknown]
  - Hypokinesia [Unknown]
  - Confusional state [Unknown]
  - Blood lactic acid increased [Unknown]
  - Sinus bradycardia [Unknown]
